FAERS Safety Report 6130272-7 (Version None)
Quarter: 2009Q1

REPORT INFORMATION
  Report Type: 
  Country: None (occurrence: None)
  Receive Date: 20090324
  Receipt Date: 20090317
  Transmission Date: 20090719
  Serious: Yes (Other)
  Sender: FDA-Public Use
  Company Number: PHEH2009US02691

PATIENT
  Age: 56 Year
  Sex: Female

DRUGS (7)
  1. LOPRESSOR [Suspect]
     Indication: ARRHYTHMIA
     Dosage: 25 MG, QID
     Route: 048
     Dates: start: 19840101
  2. LEXAPRO [Suspect]
     Indication: PANIC DISORDER
     Dosage: 5 MG, QD
     Route: 048
     Dates: start: 20090204
  3. VALIUM [Concomitant]
  4. KLONOPIN [Concomitant]
  5. ATIVAN [Concomitant]
  6. SYNTHROID [Concomitant]
  7. EFFEXOR [Concomitant]

REACTIONS (5)
  - ABDOMINAL PAIN UPPER [None]
  - BLOOD PRESSURE INCREASED [None]
  - DECREASED APPETITE [None]
  - DRUG INTERACTION [None]
  - EXTRASYSTOLES [None]
